FAERS Safety Report 4736153-5 (Version None)
Quarter: 2005Q3

REPORT INFORMATION
  Report Type: 
  Country: None (occurrence: None)
  Receive Date: 20050728
  Receipt Date: 20050419
  Transmission Date: 20060218
  Serious: No
  Sender: FDA-Public Use
  Company Number: 200511546US

PATIENT
  Age: 54 Year
  Sex: Male

DRUGS (9)
  1. KETEK [Suspect]
     Indication: DYSPHAGIA
     Dosage: 800 MG QD PO
     Route: 048
     Dates: start: 20041227, end: 20041231
  2. KETEK [Suspect]
     Indication: PHARYNGITIS
     Dosage: 800 MG QD PO
     Route: 048
     Dates: start: 20041227, end: 20041231
  3. ALBUTEROL [Concomitant]
  4. AZMACORT [Concomitant]
  5. PHENOL (CHLORASEPTIC SORE THROAT SPRAY) [Concomitant]
  6. OMEPRAZOLE [Concomitant]
  7. LORAZEPAM [Concomitant]
  8. DICYCLOMINE [Concomitant]
  9. DICYCLOMINE [Concomitant]

REACTIONS (4)
  - ANOREXIA [None]
  - DISCOMFORT [None]
  - LETHARGY [None]
  - STOMACH DISCOMFORT [None]
